FAERS Safety Report 9943414 (Version 1)
Quarter: 2014Q1

REPORT INFORMATION
  Report Type: Report from Study
  Country: US (occurrence: US)
  Receive Date: 20140303
  Receipt Date: 20140303
  Transmission Date: 20141002
  Serious: No
  Sender: FDA-Public Use
  Company Number: US-ABBVIE-13P-163-1047655-00

PATIENT
  Age: 37 Year
  Sex: Female

DRUGS (9)
  1. HUMIRA [Suspect]
     Indication: CROHN^S DISEASE
     Dates: start: 20121220, end: 20121220
  2. HUMIRA [Suspect]
     Dates: start: 20130103, end: 20130103
  3. HUMIRA [Suspect]
     Dates: start: 20130118, end: 20130118
  4. HUMIRA [Suspect]
     Dates: start: 20130202, end: 20130202
  5. HUMIRA [Suspect]
     Dates: start: 20130202
  6. ALPRAZOLAM [Concomitant]
     Indication: ANXIETY
     Dosage: AT NIGHT
  7. ALPRAZOLAM [Concomitant]
     Indication: INSOMNIA
  8. LEVOTHYROXINE [Concomitant]
     Indication: BASEDOW^S DISEASE
     Dosage: 112 MG DAILY
  9. CETIRIZINE [Concomitant]
     Indication: HYPERSENSITIVITY
     Dosage: AT NIGHT

REACTIONS (1)
  - Wrong technique in drug usage process [Unknown]
